FAERS Safety Report 9754231 (Version 1)
Quarter: 2013Q4

REPORT INFORMATION
  Report Type: Spontaneous
  Country: US (occurrence: US)
  Receive Date: 20131213
  Receipt Date: 20131213
  Transmission Date: 20140711
  Serious: No
  Sender: FDA-Public Use
  Company Number: US-TEVA-407742USA

PATIENT
  Age: 28 Year
  Sex: Female
  Weight: 90.8 kg

DRUGS (3)
  1. PARAGARD 380A [Suspect]
     Indication: CONTRACEPTION
     Route: 015
     Dates: start: 201202, end: 20130522
  2. METFORMIN [Concomitant]
     Indication: DIABETES MELLITUS
  3. LEXAPRO [Concomitant]
     Indication: ANXIETY

REACTIONS (1)
  - Device expulsion [Recovered/Resolved]
